FAERS Safety Report 14208204 (Version 4)
Quarter: 2019Q2

REPORT INFORMATION
  Report Type: Spontaneous
  Country: JP (occurrence: JP)
  Receive Date: 20171121
  Receipt Date: 20190529
  Transmission Date: 20190711
  Serious: Yes (Death, Hospitalization)
  Sender: FDA-Public Use
  Company Number: JP-UNITED THERAPEUTICS-UNT-2017-016449

PATIENT
  Age: 60 Year
  Sex: Female
  Weight: 50 kg

DRUGS (35)
  1. SPIRONOLACTONE. [Concomitant]
     Active Substance: SPIRONOLACTONE
     Indication: PULMONARY ARTERIAL HYPERTENSION
     Dosage: UNK
     Route: 048
     Dates: start: 20150625, end: 20160221
  2. PROMAC                             /00024401/ [Concomitant]
     Active Substance: NITROFURANTOIN
     Indication: GASTRIC ULCER
     Dosage: UNK
     Route: 048
     Dates: start: 20150615, end: 20160203
  3. BIOFERMIN                          /01617201/ [Concomitant]
     Active Substance: DIETARY SUPPLEMENT\PROBIOTICS
     Indication: CONSTIPATION
     Dosage: UNK
     Route: 048
     Dates: start: 20150615
  4. ALLOPURINOL. [Concomitant]
     Active Substance: ALLOPURINOL
     Indication: PRODUCT USED FOR UNKNOWN INDICATION
     Dosage: UNK
     Route: 048
     Dates: start: 20160203
  5. OPSUMIT [Concomitant]
     Active Substance: MACITENTAN
     Indication: PORTOPULMONARY HYPERTENSION
  6. LUPRAC [Concomitant]
     Active Substance: TORSEMIDE
     Indication: PULMONARY ARTERIAL HYPERTENSION
     Dosage: UNK
     Route: 048
     Dates: start: 20150625, end: 20160221
  7. AMITIZA [Concomitant]
     Active Substance: LUBIPROSTONE
     Indication: PRODUCT USED FOR UNKNOWN INDICATION
     Dosage: UNK
     Route: 048
     Dates: start: 20160204, end: 20160221
  8. DAIPHEN [Concomitant]
     Active Substance: SULFAMETHOXAZOLE\TRIMETHOPRIM
     Indication: URINARY TRACT INFECTION
     Dosage: UNK
     Route: 048
     Dates: start: 20150730, end: 20160203
  9. WARFARIN [Concomitant]
     Active Substance: WARFARIN
     Indication: PULMONARY ARTERIAL HYPERTENSION
     Dosage: UNK
     Route: 048
     Dates: start: 20150603, end: 20160106
  10. PREDONINE [Concomitant]
     Active Substance: PREDNISOLONE
     Indication: LYMPHOMA
     Dosage: UNK
     Route: 048
     Dates: start: 20150904, end: 20150924
  11. SAMSCA [Concomitant]
     Active Substance: TOLVAPTAN
     Indication: PULMONARY ARTERIAL HYPERTENSION
     Dosage: UNK
     Route: 048
     Dates: start: 20150625, end: 20160221
  12. FUROSEMIDE. [Concomitant]
     Active Substance: FUROSEMIDE
     Indication: PULMONARY ARTERIAL HYPERTENSION
     Dosage: UNK
     Route: 048
     Dates: start: 20150625, end: 20160221
  13. REMODULIN [Suspect]
     Active Substance: TREPROSTINIL
     Indication: PULMONARY ARTERIAL HYPERTENSION
     Dosage: UNK
     Route: 041
     Dates: start: 20150625, end: 20160221
  14. REMODULIN [Suspect]
     Active Substance: TREPROSTINIL
     Indication: PORTOPULMONARY HYPERTENSION
     Dosage: 0.052 ?G/KG, CONTINUING
     Route: 041
  15. SPIRONOLACTONE. [Concomitant]
     Active Substance: SPIRONOLACTONE
     Indication: PORTOPULMONARY HYPERTENSION
  16. BARACLUDE [Concomitant]
     Active Substance: ENTECAVIR
     Indication: HEPATITIS B
     Dosage: UNK
     Route: 048
     Dates: start: 20130723, end: 20160221
  17. WARFARIN [Concomitant]
     Active Substance: WARFARIN
     Indication: PORTOPULMONARY HYPERTENSION
  18. REMODULIN [Suspect]
     Active Substance: TREPROSTINIL
     Dosage: 0.033 ?G/KG, CONTINUING
     Route: 041
     Dates: start: 201507
  19. NEXIUM [Concomitant]
     Active Substance: ESOMEPRAZOLE MAGNESIUM
     Indication: GASTRIC ULCER
     Dosage: UNK
     Route: 048
     Dates: start: 20150615, end: 20160221
  20. FUROSEMIDE. [Concomitant]
     Active Substance: FUROSEMIDE
     Indication: PORTOPULMONARY HYPERTENSION
  21. RITUXIMAB. [Concomitant]
     Active Substance: RITUXIMAB
     Indication: LYMPHOMA
     Dosage: UNK
     Route: 041
     Dates: start: 20150713, end: 20150816
  22. ENDOXAN [Concomitant]
     Active Substance: CYCLOPHOSPHAMIDE
     Indication: LYMPHOMA
     Dosage: UNK
     Route: 048
     Dates: start: 20150909, end: 20150909
  23. OPSUMIT [Concomitant]
     Active Substance: MACITENTAN
     Indication: PULMONARY ARTERIAL HYPERTENSION
     Dosage: UNK
     Route: 048
     Dates: start: 20150615, end: 20160221
  24. SENNOSIDE                          /00571901/ [Concomitant]
     Active Substance: SENNOSIDES A AND B
     Indication: CONSTIPATION
     Dosage: UNK
     Route: 048
     Dates: start: 20150615, end: 20151015
  25. SAMSCA [Concomitant]
     Active Substance: TOLVAPTAN
     Indication: PORTOPULMONARY HYPERTENSION
  26. BAKTAR [Concomitant]
     Active Substance: SULFAMETHOXAZOLE\TRIMETHOPRIM
     Indication: PNEUMONIA
     Dosage: UNK
     Route: 048
     Dates: start: 20160204, end: 20160221
  27. MAGLAX [Concomitant]
     Active Substance: MAGNESIUM OXIDE
     Indication: CONSTIPATION
     Dosage: UNK
     Route: 048
     Dates: start: 20150615
  28. SLOW-K [Concomitant]
     Active Substance: POTASSIUM CHLORIDE
     Indication: HYPOKALAEMIA
     Dosage: UNK
     Route: 048
     Dates: start: 20150625, end: 20150826
  29. NEXIUM [Concomitant]
     Active Substance: ESOMEPRAZOLE MAGNESIUM
     Dosage: UNK
     Route: 048
  30. LUPRAC [Concomitant]
     Active Substance: TORSEMIDE
     Indication: PORTOPULMONARY HYPERTENSION
  31. REVATIO [Concomitant]
     Active Substance: SILDENAFIL CITRATE
     Indication: PULMONARY ARTERIAL HYPERTENSION
     Dosage: UNK
     Route: 048
     Dates: start: 201505, end: 20160221
  32. REVATIO [Concomitant]
     Active Substance: SILDENAFIL CITRATE
     Indication: PORTOPULMONARY HYPERTENSION
  33. SALOBEL [Concomitant]
     Active Substance: ALLOPURINOL
     Indication: HYPERURICAEMIA
     Dosage: UNK
     Route: 048
     Dates: start: 20150711, end: 20160221
  34. VINCRISTINE SULFATE. [Concomitant]
     Active Substance: VINCRISTINE SULFATE
     Indication: LYMPHOMA
     Dosage: UNK
     Route: 041
     Dates: start: 20150909, end: 20150909
  35. MAGMITT [Concomitant]
     Active Substance: MAGNESIUM OXIDE
     Indication: PRODUCT USED FOR UNKNOWN INDICATION
     Dosage: UNK
     Route: 048
     Dates: end: 20151112

REACTIONS (4)
  - Weight decreased [Recovering/Resolving]
  - Lymphoma [Fatal]
  - Pulmonary arterial hypertension [Unknown]
  - Platelet count decreased [Unknown]

NARRATIVE: CASE EVENT DATE: 201507
